FAERS Safety Report 6154166-6 (Version None)
Quarter: 2009Q2

REPORT INFORMATION
  Report Type: 
  Country: None (occurrence: None)
  Receive Date: 20090414
  Receipt Date: 20090402
  Transmission Date: 20091009
  Serious: Yes (Hospitalization)
  Sender: FDA-Public Use
  Company Number: US-ROCHE-625499

PATIENT
  Sex: Female

DRUGS (4)
  1. PEG-INTERFERON A-2A (RO 25-8310) [Suspect]
     Indication: HEPATITIS C
     Dosage: FORM: PFS
     Route: 065
     Dates: start: 20080201, end: 20081101
  2. PEG-INTERFERON A-2A (RO 25-8310) [Suspect]
     Dosage: RESTARTED FOR A PLANNED COURSE OF 29 WEEKS
     Route: 065
     Dates: start: 20090306
  3. RIBAVIRIN [Suspect]
     Indication: HEPATITIS C
     Dosage: DIVIDED DOSES
     Route: 065
     Dates: start: 20080201, end: 20081101
  4. RIBAVIRIN [Suspect]
     Dosage: RESTARTED FOR A PLANNED COURSE OF 29 WEEKS
     Route: 065
     Dates: start: 20090306

REACTIONS (5)
  - DIARRHOEA [None]
  - DYSPNOEA [None]
  - HERNIA [None]
  - VISUAL IMPAIRMENT [None]
  - VOMITING [None]
